FAERS Safety Report 20108517 (Version 1)
Quarter: 2021Q4

REPORT INFORMATION
  Report Type: Report from Study
  Country: US (occurrence: US)
  Receive Date: 20211124
  Receipt Date: 20211124
  Transmission Date: 20220303
  Serious: Yes (Hospitalization)
  Sender: FDA-Public Use
  Company Number: US-BoehringerIngelheim-2021-BI-139211

PATIENT
  Age: 73 Year
  Sex: Male

DRUGS (1)
  1. OFEV [Suspect]
     Active Substance: NINTEDANIB
     Indication: Interstitial lung disease
     Dosage: 150 MG BID
     Route: 048
     Dates: start: 20211029, end: 20211106

REACTIONS (3)
  - Pleural effusion [Unknown]
  - Diarrhoea [Unknown]
  - Discomfort [Unknown]

NARRATIVE: CASE EVENT DATE: 20211116
